FAERS Safety Report 17511811 (Version 3)
Quarter: 2020Q2

REPORT INFORMATION
  Report Type: Spontaneous
  Country: JP (occurrence: JP)
  Receive Date: 20200306
  Receipt Date: 20200409
  Transmission Date: 20200713
  Serious: Yes (Death, Life-Threatening, Hospitalization, Other)
  Sender: FDA-Public Use
  Company Number: JP-PFIZER INC-2020030274

PATIENT
  Age: 76 Year
  Sex: Male
  Weight: 56 kg

DRUGS (9)
  1. LEVOFLOXACIN. [Suspect]
     Active Substance: LEVOFLOXACIN
     Dosage: UNK
     Route: 041
     Dates: start: 20191227, end: 20200102
  2. TAZOPIPE [Suspect]
     Active Substance: PIPERACILLIN SODIUM\TAZOBACTAM SODIUM
     Dosage: UNK
     Route: 041
     Dates: start: 20191227, end: 20191229
  3. LOXOPROFEN [Suspect]
     Active Substance: LOXOPROFEN
     Dosage: UNK
     Route: 048
     Dates: start: 20191111, end: 20200102
  4. TRAMAL [Suspect]
     Active Substance: TRAMADOL
     Dosage: UNK
     Route: 048
     Dates: start: 201910, end: 20200102
  5. VANCOMYCIN [Suspect]
     Active Substance: VANCOMYCIN
     Dosage: UNK
     Route: 041
     Dates: start: 20200101, end: 20200103
  6. FINIBAX [Suspect]
     Active Substance: DORIPENEM MONOHYDRATE
     Dosage: UNK
     Route: 041
     Dates: start: 20200101, end: 20200103
  7. LYRICA [Suspect]
     Active Substance: PREGABALIN
     Indication: NEURALGIA
     Dosage: 12.5 MG, DAILY, (1 TO 3 PER DAILY)
     Route: 048
     Dates: start: 20191107, end: 20200103
  8. CEFCAPENE PIVOXIL [Suspect]
     Active Substance: CEFCAPENE PIVOXIL
     Dosage: UNK
     Route: 048
     Dates: start: 20191211, end: 20191223
  9. CILNIDIPINE [Suspect]
     Active Substance: CILNIDIPINE
     Dosage: UNK
     Route: 048
     Dates: start: 20191111, end: 20200103

REACTIONS (6)
  - Cerebral infarction [Fatal]
  - Rash [Not Recovered/Not Resolved]
  - Infected skin ulcer [Recovered/Resolved]
  - Bacteraemia [Recovered/Resolved]
  - Stevens-Johnson syndrome [Recovering/Resolving]
  - Septic shock [Recovered/Resolved]

NARRATIVE: CASE EVENT DATE: 201912
